FAERS Safety Report 8792948 (Version 2)
Quarter: 2013Q2

REPORT INFORMATION
  Report Type: Spontaneous
  Country: CA (occurrence: CA)
  Receive Date: 20120918
  Receipt Date: 20130403
  Transmission Date: 20140414
  Serious: Yes (Disabling, Other)
  Sender: FDA-Public Use
  Company Number: CA-ABBOTT-12P-028-0979559-00

PATIENT
  Sex: Male

DRUGS (2)
  1. MARINOL [Suspect]
     Indication: PRODUCT USED FOR UNKNOWN INDICATION
  2. NEUROLOGICAL DRUGS [Concomitant]

REACTIONS (7)
  - Myocardial infarction [Unknown]
  - Myocardial infarction [Unknown]
  - Myocardial infarction [Unknown]
  - Myocardial infarction [Unknown]
  - Myocardial infarction [Unknown]
  - Impaired work ability [Unknown]
  - Pain [Not Recovered/Not Resolved]
